FAERS Safety Report 26198817 (Version 1)
Quarter: 2025Q4

REPORT INFORMATION
  Report Type: Spontaneous
  Country: US (occurrence: US)
  Receive Date: 20251225
  Receipt Date: 20251225
  Transmission Date: 20260117
  Serious: Yes (Life-Threatening, Hospitalization)
  Sender: TEVA
  Company Number: US-TEVA-VS-3403677

PATIENT
  Age: 50 Year
  Sex: Male

DRUGS (8)
  1. EPINEPHRINE [Suspect]
     Active Substance: EPINEPHRINE
     Indication: Cardiac arrest
     Route: 065
  2. CLONAZEPAM [Concomitant]
     Active Substance: CLONAZEPAM
     Indication: Schizophrenia
     Route: 065
  3. MAGNESIUM SULFATE [Suspect]
     Active Substance: MAGNESIUM SULFATE
     Indication: Pulseless electrical activity
     Route: 065
  4. CALCIUM GLUCONATE [Suspect]
     Active Substance: CALCIUM GLUCONATE
     Indication: Pulseless electrical activity
     Route: 065
  5. TRAZODONE [Suspect]
     Active Substance: TRAZODONE HYDROCHLORIDE
     Indication: Schizophrenia
     Route: 065
  6. QUETIAPINE [Suspect]
     Active Substance: QUETIAPINE
     Indication: Schizophrenia
     Route: 065
  7. SODIUM BICARBONATE [Suspect]
     Active Substance: SODIUM BICARBONATE
     Indication: Cardiac arrest
     Dosage: DRIP
     Route: 042
  8. SODIUM BICARBONATE [Suspect]
     Active Substance: SODIUM BICARBONATE
     Indication: Cardiac arrest
     Route: 042

REACTIONS (9)
  - Toxicity to various agents [Recovering/Resolving]
  - Hypokalaemia [Unknown]
  - Bradycardia [Recovering/Resolving]
  - Cardiac arrest [Recovering/Resolving]
  - Electrocardiogram QRS complex prolonged [Recovering/Resolving]
  - Brain hypoxia [Unknown]
  - Overdose [Unknown]
  - Drug ineffective [Unknown]
  - Electrocardiogram QT prolonged [Recovering/Resolving]
